FAERS Safety Report 4295032-0 (Version None)
Quarter: 2004Q1

REPORT INFORMATION
  Report Type: 
  Country: None (occurrence: None)
  Receive Date: 20040212
  Receipt Date: 20040212
  Transmission Date: 20041129
  Serious: Yes (Other)
  Sender: FDA-Public Use
  Company Number: None

PATIENT
  Sex: Male

DRUGS (1)
  1. ZOSYN [Suspect]
     Indication: LOCALISED INFECTION
     Dosage: 4.5 G IV Q 8 HRS
     Route: 042
     Dates: start: 20030122, end: 20030211

REACTIONS (1)
  - WHITE BLOOD CELL COUNT DECREASED [None]
